FAERS Safety Report 10234046 (Version 1)
Quarter: 2014Q2

REPORT INFORMATION
  Report Type: Spontaneous
  Country: DE (occurrence: DE)
  Receive Date: 20140612
  Receipt Date: 20140612
  Transmission Date: 20141212
  Serious: Yes (Other)
  Sender: FDA-Public Use
  Company Number: DE-BAXTER-2014BAX029042

PATIENT
  Age: 1 Day
  Sex: Male
  Weight: 1.66 kg

DRUGS (6)
  1. ENDOXAN 1G [Suspect]
     Indication: B-CELL LYMPHOMA
     Dosage: 1260 MG/D
     Route: 064
     Dates: start: 20131101, end: 20131116
  2. RITUXIMAB [Suspect]
     Indication: B-CELL LYMPHOMA
     Dosage: 630 MG/D
     Route: 064
     Dates: start: 20131031, end: 20131115
  3. DOXORUBICIN [Suspect]
     Indication: B-CELL LYMPHOMA
     Dosage: 84 MG/D
     Route: 064
     Dates: start: 20131101, end: 20131116
  4. VINCRISTINE [Suspect]
     Indication: B-CELL LYMPHOMA
     Dosage: 2 MG/D
     Route: 064
     Dates: start: 20131101, end: 20131116
  5. PREDNISOLONE [Concomitant]
     Indication: B-CELL LYMPHOMA
     Dosage: 100MG/D
     Route: 064
     Dates: start: 20131101, end: 20131120
  6. NEULASTA [Concomitant]
     Indication: B-CELL LYMPHOMA
     Route: 064

REACTIONS (5)
  - Inguinal hernia [Recovered/Resolved with Sequelae]
  - Anaemia [Unknown]
  - Granulocytopenia neonatal [Unknown]
  - Foetal exposure during pregnancy [Unknown]
  - Premature baby [Unknown]
